FAERS Safety Report 18438414 (Version 3)
Quarter: 2020Q4

REPORT INFORMATION
  Report Type: Report from Study
  Country: FR (occurrence: FR)
  Receive Date: 20201029
  Receipt Date: 20201112
  Transmission Date: 20210114
  Serious: Yes (Other)
  Sender: FDA-Public Use
  Company Number: FR-ROCHE-2701877

PATIENT
  Age: 56 Year
  Sex: Male

DRUGS (17)
  1. SKENAN [Concomitant]
     Active Substance: MORPHINE SULFATE
     Route: 048
     Dates: start: 20191204, end: 20200117
  2. IBUPROFENE [Concomitant]
     Active Substance: IBUPROFEN
     Route: 048
     Dates: start: 20191122, end: 2019
  3. PETROLATUM. [Concomitant]
     Active Substance: PETROLATUM
     Indication: DRY SKIN
     Route: 061
     Dates: start: 20191213, end: 20191213
  4. PRIMPERAN [Concomitant]
     Active Substance: METOCLOPRAMIDE HYDROCHLORIDE
     Dates: start: 20200107, end: 20200114
  5. SKENAN [Concomitant]
     Active Substance: MORPHINE SULFATE
     Route: 048
     Dates: start: 20191126, end: 20191203
  6. ACTISKENAN [Concomitant]
     Active Substance: MORPHINE SULFATE
     Route: 048
     Dates: start: 20191126
  7. DIFFU K [Concomitant]
     Active Substance: POTASSIUM CHLORIDE
     Route: 048
     Dates: start: 20200108, end: 20200114
  8. OXYNORM [Concomitant]
     Active Substance: OXYCODONE HYDROCHLORIDE
     Dates: start: 20200107, end: 20200113
  9. MOVICOL [Concomitant]
     Active Substance: POLYETHYLENE GLYCOL 3350\POTASSIUM CHLORIDE\SODIUM BICARBONATE\SODIUM CHLORIDE
     Route: 048
     Dates: start: 20200103, end: 20200217
  10. LOXEN (FRANCE) [Concomitant]
     Active Substance: NICARDIPINE HYDROCHLORIDE
     Route: 048
     Dates: start: 20200108, end: 20200109
  11. VEMURAFENIB. [Suspect]
     Active Substance: VEMURAFENIB
     Indication: MALIGNANT MELANOMA
     Dosage: DATE OF LAST DOSE OF VEMURAFENIB PRIOR TO AE ONSET: 06/JAN/2020, 480 MG?DATE OF LAST DOSE OF VEMURAF
     Route: 048
     Dates: start: 20191130
  12. FORLAX [Concomitant]
     Active Substance: POLYETHYLENE GLYCOL 4000
     Indication: CONSTIPATION
     Dates: start: 20191213
  13. ATEZOLIZUMAB. [Suspect]
     Active Substance: ATEZOLIZUMAB
     Indication: MALIGNANT MELANOMA
     Dosage: DATE OF LAST DOSE OF ATEZOLIZUMAB PRIOR TO SAE ONSET: 15/MAY/2020
     Route: 041
     Dates: start: 20191226
  14. COBIMETINIB. [Suspect]
     Active Substance: COBIMETINIB
     Indication: MALIGNANT MELANOMA
     Dosage: DATE OF LAST DOSE OF COBIMETINIB PRIOR TO AE ONSET: 06/JAN/2010 WAS 40 MG??DATE OF LAST DOSE OF COBI
     Route: 048
     Dates: start: 20191130
  15. ORAMORPH [Concomitant]
     Active Substance: MORPHINE SULFATE
     Route: 048
     Dates: start: 20200113, end: 20200114
  16. PARACETAMOL [Concomitant]
     Active Substance: ACETAMINOPHEN
     Route: 048
     Dates: start: 20200107, end: 20200114
  17. CANDESARTAN. [Concomitant]
     Active Substance: CANDESARTAN
     Indication: HYPERTENSION
     Route: 048
     Dates: start: 20200218

REACTIONS (1)
  - Blood creatine phosphokinase increased [Not Recovered/Not Resolved]

NARRATIVE: CASE EVENT DATE: 20191213
